FAERS Safety Report 8482985-X (Version None)
Quarter: 2012Q3

REPORT INFORMATION
  Report Type: 
  Country: None (occurrence: None)
  Receive Date: 20120702
  Receipt Date: 20120615
  Transmission Date: 20120928
  Serious: Yes (Other)
  Sender: FDA-Public Use
  Company Number: DE-ABBOTT-12P-062-0903912-00

PATIENT
  Age: 60 Year
  Sex: Male

DRUGS (2)
  1. MARCUMAR [Concomitant]
     Indication: PRODUCT USED FOR UNKNOWN INDICATION
  2. PANZYTRAT [Suspect]
     Indication: PRODUCT USED FOR UNKNOWN INDICATION
     Route: 065

REACTIONS (1)
  - COAGULATION TEST ABNORMAL [None]
